FAERS Safety Report 21922869 (Version 1)
Quarter: 2023Q1

REPORT INFORMATION
  Report Type: Spontaneous
  Country: DE (occurrence: DE)
  Receive Date: 20230128
  Receipt Date: 20230128
  Transmission Date: 20230417
  Serious: Yes (Hospitalization)
  Sender: FDA-Public Use
  Company Number: DE-009507513-2301DEU006489

PATIENT
  Age: 72 Year
  Sex: Female
  Weight: 44 kg

DRUGS (6)
  1. PEMETREXED [Suspect]
     Active Substance: PEMETREXED
     Indication: Non-small cell lung cancer
     Dosage: 695 MG (1ST LINE)
     Route: 065
     Dates: start: 20221028
  2. PEMETREXED [Suspect]
     Active Substance: PEMETREXED
     Dosage: 695 MG (1ST LINE)
     Route: 065
     Dates: start: 20221209
  3. CARBOPLATIN [Suspect]
     Active Substance: CARBOPLATIN
     Indication: Non-small cell lung cancer
     Dosage: 390 MG (1ST LINE)
     Route: 065
     Dates: start: 20221028
  4. CARBOPLATIN [Suspect]
     Active Substance: CARBOPLATIN
     Dosage: 390 MG (1ST LINE)
     Route: 065
     Dates: start: 20221209
  5. PEMBROLIZUMAB [Suspect]
     Active Substance: PEMBROLIZUMAB
     Indication: Non-small cell lung cancer
     Dosage: 200 MG (1ST LINE)
     Route: 065
     Dates: start: 20221117
  6. PEMBROLIZUMAB [Suspect]
     Active Substance: PEMBROLIZUMAB
     Dosage: 200 MG (1ST LINE)
     Route: 065
     Dates: start: 20221209

REACTIONS (1)
  - Pneumonitis [Recovering/Resolving]

NARRATIVE: CASE EVENT DATE: 20221211
